FAERS Safety Report 9160206 (Version 1)
Quarter: 2013Q1

REPORT INFORMATION
  Report Type: Spontaneous
  Country: JP (occurrence: JP)
  Receive Date: 20130313
  Receipt Date: 20130313
  Transmission Date: 20140127
  Serious: Yes (Hospitalization, Other)
  Sender: FDA-Public Use
  Company Number: JP-MYLANLABS-2013S1001503

PATIENT
  Age: 73 Year
  Sex: Female
  Weight: 46.2 kg

DRUGS (15)
  1. CARBOPLATIN [Suspect]
     Indication: MALIGNANT PERITONEAL NEOPLASM
     Route: 033
     Dates: start: 20121009, end: 20121009
  2. CARBOPLATIN [Suspect]
     Indication: MALIGNANT PERITONEAL NEOPLASM
     Route: 033
     Dates: start: 20121107, end: 20121107
  3. CARBOPLATIN [Suspect]
     Indication: MALIGNANT PERITONEAL NEOPLASM
     Route: 033
     Dates: start: 20130109, end: 20130109
  4. PACLITAXEL [Concomitant]
     Indication: MALIGNANT PERITONEAL NEOPLASM
     Route: 041
     Dates: start: 20121009, end: 20121009
  5. PACLITAXEL [Concomitant]
     Indication: MALIGNANT PERITONEAL NEOPLASM
     Route: 041
     Dates: start: 20121016, end: 20121016
  6. PACLITAXEL [Concomitant]
     Indication: MALIGNANT PERITONEAL NEOPLASM
     Route: 041
     Dates: start: 20121023, end: 20121023
  7. PACLITAXEL [Concomitant]
     Indication: MALIGNANT PERITONEAL NEOPLASM
     Route: 041
     Dates: start: 20121107, end: 20121107
  8. PACLITAXEL [Concomitant]
     Indication: MALIGNANT PERITONEAL NEOPLASM
     Route: 041
     Dates: start: 20121114, end: 20121114
  9. PACLITAXEL [Concomitant]
     Indication: MALIGNANT PERITONEAL NEOPLASM
     Route: 041
     Dates: start: 20121203, end: 20121203
  10. PACLITAXEL [Concomitant]
     Indication: MALIGNANT PERITONEAL NEOPLASM
     Route: 041
     Dates: start: 20130109, end: 20130109
  11. PACLITAXEL [Concomitant]
     Indication: MALIGNANT PERITONEAL NEOPLASM
     Route: 041
     Dates: start: 20130116
  12. PACLITAXEL [Concomitant]
     Indication: MALIGNANT PERITONEAL NEOPLASM
     Route: 041
     Dates: start: 20130206
  13. PACLITAXEL [Concomitant]
     Indication: MALIGNANT PERITONEAL NEOPLASM
     Route: 041
     Dates: start: 20130220
  14. PACLITAXEL [Concomitant]
     Indication: MALIGNANT PERITONEAL NEOPLASM
     Route: 041
     Dates: start: 20130227
  15. ZEFIX [Concomitant]
     Indication: PRODUCT USED FOR UNKNOWN INDICATION
     Route: 048

REACTIONS (5)
  - Abdominal pain [Recovered/Resolved]
  - Fall [Recovered/Resolved]
  - Loss of consciousness [Recovered/Resolved]
  - Musculoskeletal stiffness [Recovered/Resolved]
  - Urinary incontinence [Recovered/Resolved]
